FAERS Safety Report 24675512 (Version 2)
Quarter: 2024Q4

REPORT INFORMATION
  Report Type: Spontaneous
  Country: US (occurrence: US)
  Receive Date: 20241128
  Receipt Date: 20241128
  Transmission Date: 20250115
  Serious: No
  Sender: SANDOZ
  Company Number: US-SANDOZ-SDZ2024US098103

PATIENT
  Sex: Female

DRUGS (1)
  1. ALBUTEROL SULFATE [Suspect]
     Active Substance: ALBUTEROL SULFATE
     Indication: Asthma
     Dosage: BID, AEROSOL FOR ORAL INHALATION
     Route: 065

REACTIONS (4)
  - Bronchospasm [Unknown]
  - Incorrect dose administered [Unknown]
  - Device defective [Unknown]
  - Off label use [Unknown]
